FAERS Safety Report 6088852-3 (Version None)
Quarter: 2009Q1

REPORT INFORMATION
  Report Type: 
  Country: None (occurrence: None)
  Receive Date: 20090224
  Receipt Date: 20090216
  Transmission Date: 20090719
  Serious: Yes (Other)
  Sender: FDA-Public Use
  Company Number: PHHY2009FR05818

PATIENT
  Age: 20 Year
  Sex: Female

DRUGS (2)
  1. LAMISIL [Suspect]
     Indication: DERMATOPHYTOSIS
     Route: 048
  2. LAMISIL [Suspect]
     Indication: INTERTRIGO

REACTIONS (2)
  - LYMPHOEDEMA [None]
  - OEDEMA PERIPHERAL [None]
